FAERS Safety Report 15818799 (Version 2)
Quarter: 2019Q1

REPORT INFORMATION
  Report Type: Spontaneous
  Country: US (occurrence: US)
  Receive Date: 20190113
  Receipt Date: 20190130
  Transmission Date: 20190417
  Serious: Yes (Other)
  Sender: FDA-Public Use
  Company Number: US-DRREDDYS-USA/USA/19/0106730

PATIENT
  Sex: Female

DRUGS (2)
  1. RISPERIDONE. [Suspect]
     Active Substance: RISPERIDONE
     Dosage: IN THE NIGHT
  2. RISPERIDONE. [Suspect]
     Active Substance: RISPERIDONE
     Indication: PSYCHOTIC DISORDER
     Dosage: IN THE MORNING

REACTIONS (1)
  - Amenorrhoea [Not Recovered/Not Resolved]
